FAERS Safety Report 22289645 (Version 3)
Quarter: 2024Q1

REPORT INFORMATION
  Report Type: Report from Study
  Country: CA (occurrence: CA)
  Receive Date: 20230505
  Receipt Date: 20240119
  Transmission Date: 20240409
  Serious: Yes (Other)
  Sender: FDA-Public Use
  Company Number: CA-PFIZER INC-202300178032

PATIENT
  Age: 45 Year
  Sex: Female

DRUGS (14)
  1. RITUXIMAB [Suspect]
     Active Substance: RITUXIMAB
     Indication: Pulmonary fibrosis
     Dosage: 1000 MG
     Route: 042
  2. RITUXIMAB [Suspect]
     Active Substance: RITUXIMAB
     Dosage: 1000 MG
     Route: 042
  3. RITUXIMAB [Suspect]
     Active Substance: RITUXIMAB
     Dosage: 1000 MG
     Route: 042
  4. RITUXIMAB [Suspect]
     Active Substance: RITUXIMAB
     Dosage: 1000 MG
     Route: 042
  5. RITUXIMAB [Suspect]
     Active Substance: RITUXIMAB
     Dosage: 1000 MG
     Route: 042
  6. RITUXIMAB [Suspect]
     Active Substance: RITUXIMAB
     Dosage: 1000 MG
     Route: 042
  7. RITUXIMAB [Suspect]
     Active Substance: RITUXIMAB
     Indication: Pulmonary fibrosis
     Dosage: 1000 MG
     Route: 042
  8. ACETAMINOPHEN [Concomitant]
     Active Substance: ACETAMINOPHEN
     Dosage: UNK
     Route: 048
  9. ACETAMINOPHEN [Concomitant]
     Active Substance: ACETAMINOPHEN
     Dosage: 650 MG
     Route: 048
  10. DIPHENHYDRAMINE [Concomitant]
     Active Substance: DIPHENHYDRAMINE
     Dosage: UNK
     Route: 065
  11. DIPHENHYDRAMINE [Concomitant]
     Active Substance: DIPHENHYDRAMINE
     Dosage: 50 MG
     Route: 048
  12. METHYLPREDNISOLONE [Concomitant]
     Active Substance: METHYLPREDNISOLONE
     Dosage: UNK
     Route: 042
  13. METHYLPREDNISOLONE [Concomitant]
     Active Substance: METHYLPREDNISOLONE
     Dosage: 100 MG
     Route: 042
  14. VITAMIN B12 [Concomitant]
     Active Substance: CYANOCOBALAMIN
     Dosage: UNK
     Route: 065

REACTIONS (10)
  - Dyspepsia [Recovering/Resolving]
  - Dyspnoea [Recovering/Resolving]
  - Anaemia [Recovering/Resolving]
  - Off label use [Recovering/Resolving]
  - Blindness [Recovering/Resolving]
  - Decreased activity [Recovering/Resolving]
  - Dyspnoea exertional [Recovering/Resolving]
  - Respiratory disorder [Recovering/Resolving]
  - Total lung capacity decreased [Recovering/Resolving]
  - Feeling hot [Recovering/Resolving]
